FAERS Safety Report 9832363 (Version 2)
Quarter: 2014Q1

REPORT INFORMATION
  Report Type: Spontaneous
  Country: US (occurrence: US)
  Receive Date: 20140121
  Receipt Date: 20140121
  Transmission Date: 20141002
  Serious: Yes (Death, Hospitalization, Other)
  Sender: FDA-Public Use
  Company Number: US-BAXTER-2014BAX001818

PATIENT
  Sex: Female

DRUGS (4)
  1. DIANEAL LOW CALCIUM [Suspect]
     Indication: PERITONEAL DIALYSIS
     Route: 033
     Dates: start: 2012, end: 20140113
  2. DIANEAL LOW CALCIUM [Suspect]
     Route: 033
     Dates: start: 2012, end: 20140113
  3. DIANEAL LOW CALCIUM [Suspect]
     Indication: PERITONEAL DIALYSIS
     Route: 033
     Dates: start: 2012, end: 20140113
  4. DIANEAL LOW CALCIUM [Suspect]
     Route: 033
     Dates: start: 2012, end: 20140113

REACTIONS (6)
  - Death [Fatal]
  - Asthenia [Recovering/Resolving]
  - Hyperglycaemia [Unknown]
  - Pancreatic carcinoma metastatic [Unknown]
  - Abdominal pain upper [Recovering/Resolving]
  - Hypotension [Unknown]
